FAERS Safety Report 24446247 (Version 1)
Quarter: 2024Q4

REPORT INFORMATION
  Report Type: Spontaneous
  Country: US (occurrence: None)
  Receive Date: 20241012
  Receipt Date: 20241012
  Transmission Date: 20250115
  Serious: Yes (Life-Threatening, Hospitalization, Disabling, Other)
  Sender: Public
  Company Number: None

PATIENT
  Age: 44 Year
  Sex: Female
  Weight: 52.2 kg

DRUGS (6)
  1. SPIRONOLACTONE [Suspect]
     Active Substance: SPIRONOLACTONE
     Indication: Hypertension
     Dosage: OTHER QUANTITY : 2 TABLET(S);?FREQUENCY : EVERY 4 HOURS;?
     Route: 048
     Dates: start: 20221124, end: 20231125
  2. LABETALOL [Suspect]
     Active Substance: LABETALOL
  3. LISINOPRIL [Suspect]
     Active Substance: LISINOPRIL
  4. CLONIDINE [Concomitant]
     Active Substance: CLONIDINE
  5. MINOXIDIL [Concomitant]
     Active Substance: MINOXIDIL
  6. hydrolyzine [Concomitant]

REACTIONS (10)
  - End stage renal disease [None]
  - Renal neoplasm [None]
  - Nephrolithiasis [None]
  - Uterine haemorrhage [None]
  - Uterine leiomyoma [None]
  - Glaucoma [None]
  - Dementia [None]
  - Blood pressure increased [None]
  - Breast cancer [None]
  - Neoplasm [None]

NARRATIVE: CASE EVENT DATE: 20231116
